FAERS Safety Report 4869546-6 (Version None)
Quarter: 2005Q4

REPORT INFORMATION
  Report Type: 
  Country: None (occurrence: None)
  Receive Date: 20051227
  Receipt Date: 20051212
  Transmission Date: 20060501
  Serious: Yes (Hospitalization)
  Sender: FDA-Public Use
  Company Number: FR-JNJFOC-20051003867

PATIENT
  Age: 4 Year
  Sex: Male
  Weight: 13 kg

DRUGS (4)
  1. TOPIRAMATE [Suspect]
     Indication: EPILEPSY
     Dosage: SEE IMAGE
     Route: 048
     Dates: start: 20040801, end: 20050601
  2. TOPIRAMATE [Suspect]
     Indication: EPILEPSY
     Dosage: SEE IMAGE
     Route: 048
     Dates: start: 20050601, end: 20051001
  3. TOPIRAMATE [Suspect]
     Indication: EPILEPSY
     Dosage: SEE IMAGE
     Route: 048
     Dates: start: 20051001
  4. CLONAZEPAM [Concomitant]

REACTIONS (2)
  - MICROLITHIASIS [None]
  - NEPHROLITHIASIS [None]
